FAERS Safety Report 4412152-8 (Version None)
Quarter: 2004Q3

REPORT INFORMATION
  Report Type: 
  Country: None (occurrence: None)
  Receive Date: 20040730
  Receipt Date: 20040707
  Transmission Date: 20050211
  Serious: Yes (Life-Threatening, Hospitalization)
  Sender: FDA-Public Use
  Company Number: US-ROCHE-373545

PATIENT
  Age: 52 Year
  Sex: Male
  Weight: 82.7 kg

DRUGS (10)
  1. CAPECITABINE [Suspect]
     Indication: COLORECTAL CANCER METASTATIC
     Route: 048
     Dates: start: 20040408
  2. BEVACIZUMAB [Suspect]
     Indication: COLORECTAL CANCER METASTATIC
     Route: 042
     Dates: start: 20040408
  3. OXALIPLATIN [Suspect]
     Indication: COLORECTAL CANCER METASTATIC
     Route: 042
     Dates: start: 20040408
  4. PARACETAMOL [Concomitant]
  5. KANK-A [Concomitant]
     Dates: start: 20040521, end: 20040523
  6. ATENOLOL [Concomitant]
     Dates: start: 20040527
  7. ALGINATE [Concomitant]
     Dates: start: 20040525
  8. DICYCLOMINE HCL [Concomitant]
     Dates: start: 20040428
  9. BISACODYL [Concomitant]
     Dates: start: 20040614
  10. HYDROCODONE BITARTRATE + ACETAMINOPHEN [Concomitant]
     Dates: start: 20040614

REACTIONS (10)
  - ATRIAL FIBRILLATION [None]
  - DILATATION ATRIAL [None]
  - HYPOTENSION [None]
  - INTESTINAL ISCHAEMIA [None]
  - LARGE INTESTINE PERFORATION [None]
  - PERITONITIS [None]
  - PULMONARY HYPERTENSION [None]
  - SEPSIS [None]
  - TRICUSPID VALVE INCOMPETENCE [None]
  - VENTRICULAR HYPERTROPHY [None]
